FAERS Safety Report 8006290-0 (Version None)
Quarter: 2011Q4

REPORT INFORMATION
  Report Type: 
  Country: None (occurrence: None)
  Receive Date: 20111226
  Receipt Date: 20111215
  Transmission Date: 20120403
  Serious: Yes (Other)
  Sender: FDA-Public Use
  Company Number: CA-BAYER-2011-120669

PATIENT

DRUGS (1)
  1. MIRENA [Suspect]
     Dosage: CONT
     Route: 064

REACTIONS (1)
  - BRADYCARDIA FOETAL [None]
